FAERS Safety Report 9586278 (Version 2)
Quarter: 2016Q1

REPORT INFORMATION
  Report Type: Report from Study
  Country: DE (occurrence: DE)
  Receive Date: 20131003
  Receipt Date: 20160127
  Transmission Date: 20160526
  Serious: No
  Sender: FDA-Public Use
  Company Number: DE-ROCHE-1284080

PATIENT
  Sex: Female

DRUGS (1)
  1. BEVACIZUMAB [Suspect]
     Active Substance: BEVACIZUMAB
     Indication: OVARIAN EPITHELIAL CANCER
     Dosage: LAST DOSE OF BEVACIZUMAB PRIOR TO THE EVENT: 26/SEP/2013.
     Route: 042

REACTIONS (1)
  - Pruritus [Not Recovered/Not Resolved]
